FAERS Safety Report 22896209 (Version 2)
Quarter: 2023Q4

REPORT INFORMATION
  Report Type: Spontaneous
  Country: US (occurrence: US)
  Receive Date: 20230901
  Receipt Date: 20231205
  Transmission Date: 20240109
  Serious: No
  Sender: FDA-Public Use
  Company Number: US-PFIZER INC-202300232742

PATIENT
  Age: 52 Year
  Sex: Female

DRUGS (4)
  1. DOCETAXEL [Suspect]
     Active Substance: DOCETAXEL\DOCETAXEL ANHYDROUS
     Indication: Triple positive breast cancer
     Dosage: UNK, CYCLIC (WEEKLY FOR 10 CYCLES)
     Dates: start: 20170526, end: 20170728
  2. TAXOL [Concomitant]
     Active Substance: PACLITAXEL
     Indication: Chemotherapy
     Dosage: UNK
  3. HERCEPTIN [Concomitant]
     Active Substance: TRASTUZUMAB
     Indication: Chemotherapy
     Dosage: UNK
  4. PERJETA [Concomitant]
     Active Substance: PERTUZUMAB
     Indication: Chemotherapy
     Dosage: UNK

REACTIONS (3)
  - Dacryostenosis acquired [Not Recovered/Not Resolved]
  - Lacrimation increased [Not Recovered/Not Resolved]
  - Lacrimal structure injury [Not Recovered/Not Resolved]

NARRATIVE: CASE EVENT DATE: 20170601
